FAERS Safety Report 9704949 (Version 1)
Quarter: 2013Q4

REPORT INFORMATION
  Report Type: Spontaneous
  Country: CN (occurrence: CN)
  Receive Date: 20131122
  Receipt Date: 20131122
  Transmission Date: 20140711
  Serious: Yes (Other)
  Sender: FDA-Public Use
  Company Number: PHHY2013CN130778

PATIENT
  Age: 38 Year
  Sex: Female

DRUGS (12)
  1. CLOZAPINE [Suspect]
     Indication: SCHIZOPHRENIA, PARANOID TYPE
     Dosage: 450 MG, PER DAY
  2. CLOZAPINE [Suspect]
     Dosage: 450 MG, PER DAY
     Dates: start: 200404
  3. CLOZAPINE [Suspect]
     Dosage: 500 MG, PER DAY
  4. CLOZAPINE [Suspect]
     Dosage: 350 MG, PER DAY
     Dates: start: 200506
  5. CLOZAPINE [Suspect]
     Dosage: 250 MG, PER DAY
     Dates: start: 200607
  6. CLOZAPINE [Suspect]
     Dosage: 50 MG, PER DAY
     Dates: start: 200705
  7. CLOZAPINE [Suspect]
     Dosage: 25 MG, PER DAY
  8. OLANZAPINE [Suspect]
     Indication: SCHIZOPHRENIA, PARANOID TYPE
     Dosage: 25 MG, PER DAY
  9. CHLORPROMAZINE [Suspect]
     Indication: SCHIZOPHRENIA, PARANOID TYPE
  10. RISPERIDONE [Suspect]
     Indication: SCHIZOPHRENIA, PARANOID TYPE
  11. HALOPERIDOL [Suspect]
     Indication: SCHIZOPHRENIA, PARANOID TYPE
  12. ANTIPSYCHOTICS [Suspect]
     Indication: SCHIZOPHRENIA, PARANOID TYPE

REACTIONS (17)
  - Epilepsy [Unknown]
  - Convulsion [Unknown]
  - Amnesia [Unknown]
  - Delusion [Unknown]
  - Apathy [Unknown]
  - Insomnia [Unknown]
  - Paranoia [Unknown]
  - Emotional disorder [Unknown]
  - Feeling abnormal [Recovering/Resolving]
  - Impulsive behaviour [Recovering/Resolving]
  - Impaired self-care [Recovering/Resolving]
  - Hostility [Unknown]
  - Blood glucose increased [Unknown]
  - Obsessive-compulsive disorder [Unknown]
  - Liver function test abnormal [Unknown]
  - Lipid metabolism disorder [Unknown]
  - Drug ineffective [Unknown]
